FAERS Safety Report 12166961 (Version 3)
Quarter: 2016Q3

REPORT INFORMATION
  Report Type: Spontaneous
  Country: US (occurrence: US)
  Receive Date: 20160310
  Receipt Date: 20160721
  Transmission Date: 20161109
  Serious: Yes (Other)
  Sender: FDA-Public Use
  Company Number: US-BEH-2016059570

PATIENT
  Age: 73 Year
  Sex: Female
  Weight: 75.75 kg

DRUGS (15)
  1. HIZENTRA [Suspect]
     Active Substance: HUMAN IMMUNOGLOBULIN G
     Indication: HYPOGAMMAGLOBULINAEMIA
     Dosage: 8 G, QW
     Route: 058
     Dates: start: 20101015
  2. VITAMIN D [Concomitant]
     Active Substance: CHOLECALCIFEROL
  3. DIPHENHYDRAMINE. [Concomitant]
     Active Substance: DIPHENHYDRAMINE
  4. SPIRIVA [Concomitant]
     Active Substance: TIOTROPIUM BROMIDE MONOHYDRATE
  5. EPIPEN [Concomitant]
     Active Substance: EPINEPHRINE
  6. CRESTOR [Concomitant]
     Active Substance: ROSUVASTATIN CALCIUM
  7. ADVAIR HFA [Concomitant]
     Active Substance: FLUTICASONE PROPIONATE\SALMETEROL XINAFOATE
  8. CITRACAL [Concomitant]
     Active Substance: CALCIUM CITRATE
  9. FLONASE [Concomitant]
     Active Substance: FLUTICASONE PROPIONATE
  10. FLAXSEED [Concomitant]
     Active Substance: FLAX SEED
  11. OMEGA [Concomitant]
     Active Substance: CONVALLARIA MAJALIS\CRATAEGUS LAEVIGATA LEAF\PROXYPHYLLINE
  12. VITAMIN C [Concomitant]
     Active Substance: ASCORBIC ACID
  13. RESTORIL [Concomitant]
     Active Substance: TEMAZEPAM
  14. SYNTHROID [Concomitant]
     Active Substance: LEVOTHYROXINE SODIUM
  15. LIDOCAINE/PRILOCAINE [Concomitant]
     Active Substance: LIDOCAINE\PRILOCAINE

REACTIONS (2)
  - Cough [Recovered/Resolved]
  - Pseudomonas infection [Recovered/Resolved]

NARRATIVE: CASE EVENT DATE: 20160201
